FAERS Safety Report 23410240 (Version 1)
Quarter: 2024Q1

REPORT INFORMATION
  Report Type: Spontaneous
  Country: CN (occurrence: CN)
  Receive Date: 20240117
  Receipt Date: 20240117
  Transmission Date: 20240410
  Serious: Yes (Hospitalization)
  Sender: FDA-Public Use
  Company Number: CN-FreseniusKabi-FK202400795

PATIENT
  Age: 64 Year
  Sex: Male
  Weight: 75 kg

DRUGS (1)
  1. KABIVEN [Suspect]
     Active Substance: AMINO ACIDS\ANHYDROUS DEXTROSE\CALCIUM CHLORIDE\MAGNESIUM SULFATE HEPTAHYDRATE\POTASSIUM CHLORIDE\SO
     Indication: Gastric cancer
     Dosage: 900ML?FORM OF ADMINISTRATION: EMULSION FOR  INJECTION
     Route: 041
     Dates: start: 20240103, end: 20240103

REACTIONS (4)
  - Nausea [Recovering/Resolving]
  - Gastrooesophageal reflux disease [Recovering/Resolving]
  - Eructation [Recovering/Resolving]
  - Vomiting [Recovering/Resolving]

NARRATIVE: CASE EVENT DATE: 20240103
